FAERS Safety Report 26040256 (Version 2)
Quarter: 2025Q4

REPORT INFORMATION
  Report Type: Spontaneous
  Country: GB (occurrence: GB)
  Receive Date: 20251113
  Receipt Date: 20251113
  Transmission Date: 20260118
  Serious: Yes (Disabling, Other)
  Sender: RANBAXY
  Company Number: GB-MHRA-TPP7351119C24950864YC1761663627060

PATIENT
  Age: 66 Year
  Sex: Female
  Weight: 65 kg

DRUGS (12)
  1. ROSUVASTATIN [Suspect]
     Active Substance: ROSUVASTATIN
     Indication: Ill-defined disorder
     Dosage: 5 MILLIGRAM, DAILY
     Route: 065
     Dates: start: 20250908
  2. CALCIUM CARBONATE\CHOLECALCIFEROL [Concomitant]
     Active Substance: CALCIUM CARBONATE\CHOLECALCIFEROL
     Indication: Ill-defined disorder
     Dosage: TAKE ONE TABLET TWICE DAILY TO HELP PREVENT BON...
     Route: 065
     Dates: start: 20250423
  3. BECLOMETHASONE DIPROPIONATE [Concomitant]
     Active Substance: BECLOMETHASONE DIPROPIONATE
     Indication: Ill-defined disorder
     Dosage: TWO SPRAYS INTO EACH NOSTRIL TWICE DAILY
     Route: 065
     Dates: start: 20250423
  4. EZETIMIBE [Concomitant]
     Active Substance: EZETIMIBE
     Indication: Ill-defined disorder
     Dosage: TAKE ONE TABLET ONCE A DAY TO HELP LOWER CHOLES...
     Route: 065
     Dates: start: 20250423, end: 20251028
  5. HYDROXYZINE [Concomitant]
     Active Substance: HYDROXYZINE HYDROCHLORIDE
     Indication: Ill-defined disorder
     Dosage: TAKE ONE AT 9PM FOR SLEEP AND ANXIETY
     Route: 065
     Dates: start: 20250423
  6. LOFEPRAMINE [Concomitant]
     Active Substance: LOFEPRAMINE
     Indication: Ill-defined disorder
     Dosage: TAKE ONE OR TWO TABLETS AT 9PM  FOR DEPRESSION
     Route: 065
     Dates: start: 20250423
  7. MIRTAZAPINE [Concomitant]
     Active Substance: MIRTAZAPINE
     Indication: Ill-defined disorder
     Dosage: TAKE ONE TABLET AT NIGHT TO HELP PREVENT LOW MOOD
     Route: 065
     Dates: start: 20250423
  8. MONTELUKAST [Concomitant]
     Active Substance: MONTELUKAST
     Indication: Ill-defined disorder
     Dosage: TAKE ONE TABLET AT NIGHT TO HELP PREVENT BREATH...
     Route: 065
     Dates: start: 20250423
  9. PREGABALIN [Concomitant]
     Active Substance: PREGABALIN
     Indication: Ill-defined disorder
     Dosage: TAKE ONE CAPSULE TWICE A DAY (TOTAL DOSE 75MG)
     Route: 065
     Dates: start: 20250423
  10. ALBUTEROL [Concomitant]
     Active Substance: ALBUTEROL
     Indication: Ill-defined disorder
     Dosage: INHALE ONE TO TWO PUFFS UP TO FOUR TIMES A DAY ...
     Route: 065
     Dates: start: 20250423
  11. TRAMADOL [Concomitant]
     Active Substance: TRAMADOL
     Indication: Ill-defined disorder
     Dosage: TAKE ONE CAPSULE EVERY 4 TO 6 HOURS WHEN NEEDED...
     Route: 065
     Dates: start: 20250423
  12. BECLOMETHASONE DIPROPIONATE\FORMOTEROL FUMARATE\GLYCOPYRROLATE [Concomitant]
     Active Substance: BECLOMETHASONE DIPROPIONATE\FORMOTEROL FUMARATE\GLYCOPYRROLATE
     Indication: Ill-defined disorder
     Dosage: TWO PUFFS TWICE DAILY
     Route: 065
     Dates: start: 20250423

REACTIONS (3)
  - Memory impairment [Recovered/Resolved]
  - Brain fog [Recovered/Resolved]
  - Insomnia [Recovered/Resolved]
